FAERS Safety Report 5054891-4 (Version None)
Quarter: 2006Q3

REPORT INFORMATION
  Report Type: 
  Country: None (occurrence: None)
  Receive Date: 20060719
  Receipt Date: 20060707
  Transmission Date: 20061208
  Serious: Yes (Hospitalization)
  Sender: FDA-Public Use
  Company Number: US-GILEAD-2006-0009847

PATIENT
  Age: 43 Year
  Sex: Male
  Weight: 62.425 kg

DRUGS (7)
  1. EMTRICITABINE [Suspect]
     Indication: HIV INFECTION
     Route: 048
     Dates: start: 20060617, end: 20060622
  2. TENOFOVIR [Suspect]
     Indication: HIV INFECTION
     Route: 048
     Dates: start: 20060617, end: 20060622
  3. EFAVIRENZ [Suspect]
     Indication: HIV INFECTION
     Route: 048
     Dates: start: 20060617, end: 20060622
  4. BACTRIM DS [Concomitant]
  5. ZITHROMAX [Concomitant]
     Route: 048
  6. GABAPENTIN [Concomitant]
     Route: 048
  7. MORPHINE [Concomitant]

REACTIONS (1)
  - PYREXIA [None]
